FAERS Safety Report 9391788 (Version 1)
Quarter: 2013Q3

REPORT INFORMATION
  Report Type: Spontaneous
  Country: US (occurrence: None)
  Receive Date: 20130705
  Receipt Date: 20130705
  Transmission Date: 20140515
  Serious: Yes (Hospitalization)
  Sender: FDA-Public Use
  Company Number: ACO_37105_2013

PATIENT
  Age: 78 Year
  Sex: Male
  Weight: 81.6 kg

DRUGS (7)
  1. AMPYRA (DALFAMPRIDINE) TABLET, 10MG [Suspect]
     Indication: MULTIPLE SCLEROSIS
     Route: 048
     Dates: start: 201106
  2. SOLU-MEDROL (METHYLPREDNISOLONE SODIUM SUCCINATE) [Concomitant]
  3. ULTRAM (TRAMADOL HYDROCHLORIDE) [Concomitant]
  4. ZANAFLEX (TIZANIDINE HYDROCHLORIDE) [Concomitant]
  5. ADVIL (IBUPROFEN) [Concomitant]
  6. AMBIEN (ZOLPIDEM TARTRATE) .5MG [Concomitant]
  7. EYE DROPS (TETYZOLINE HYDROCHLORIDE) [Concomitant]

REACTIONS (2)
  - Hip fracture [None]
  - Staphylococcal infection [None]
